FAERS Safety Report 5318748-3 (Version None)
Quarter: 2007Q2

REPORT INFORMATION
  Report Type: 
  Country: None (occurrence: None)
  Receive Date: 20070503
  Receipt Date: 20070503
  Transmission Date: 20071010
  Serious: Yes (Hospitalization)
  Sender: FDA-Public Use
  Company Number: None

PATIENT
  Age: 42 Year
  Sex: Female
  Weight: 78.0187 kg

DRUGS (4)
  1. CHANTIX [Suspect]
     Indication: MIGRAINE
     Dosage: 1 MG BID PO
     Route: 048
  2. CHANTIX [Suspect]
     Indication: SMOKING CESSATION THERAPY
     Dosage: 1 MG BID PO
     Route: 048
  3. EFFEXOR XR [Suspect]
     Indication: DEPRESSION
     Dosage: 37.5 MG QAM PO
     Route: 048
  4. AUGMENTIN '125' [Concomitant]

REACTIONS (1)
  - PANCREATITIS [None]
